FAERS Safety Report 16233879 (Version 1)
Quarter: 2019Q2

REPORT INFORMATION
  Report Type: Spontaneous
  Country: DK (occurrence: DK)
  Receive Date: 20190424
  Receipt Date: 20190424
  Transmission Date: 20190711
  Serious: Yes (Hospitalization)
  Sender: FDA-Public Use
  Company Number: DK-EXELIXIS-CABO-19020393

PATIENT
  Age: 55 Year
  Sex: Female

DRUGS (14)
  1. CABOMETYX [Suspect]
     Active Substance: CABOZANTINIB S-MALATE
     Indication: RENAL CANCER
     Dosage: STYRKE: 40-60MG DOSIS: 40-60MG DAGLIGT ()
     Route: 048
     Dates: start: 20181105, end: 20190128
  2. ESOMEPRAZOLE MAGNESIUM. [Concomitant]
     Active Substance: ESOMEPRAZOLE MAGNESIUM
     Indication: GASTROOESOPHAGEAL REFLUX PROPHYLAXIS
     Dosage: STYRKE: 20MG
     Route: 048
  3. GLYCERYLNITRAT [Concomitant]
     Indication: ANGINA PECTORIS
     Dosage: STYRKE: 0,4MG/DOSIS ; AS NECESSARY
     Route: 060
     Dates: start: 20180924
  4. LEVOTHYROXINE SODIUM. [Concomitant]
     Active Substance: LEVOTHYROXINE SODIUM
     Indication: HYPOMETABOLISM
     Dosage: STYRKE: 50 MIKROGRAM
     Route: 048
  5. IBUPROFEN. [Concomitant]
     Active Substance: IBUPROFEN
     Indication: PAIN
     Dosage: STYRKE: 400MG ; AS NECESSARY
     Route: 048
     Dates: start: 20140403
  6. PARACETAMOL [Concomitant]
     Active Substance: ACETAMINOPHEN
     Indication: PAIN
     Dosage: STYRKE: 500MG OG 665MGDOSIS: UKENDT. ()
  7. BISOPROLOL [Concomitant]
     Active Substance: BISOPROLOL
     Indication: CARDIAC DISORDER
     Dosage: STYRKE: 5MG
     Route: 048
     Dates: start: 20180924
  8. QUININE [Concomitant]
     Active Substance: QUININE
     Indication: MUSCLE SPASMS
     Dosage: STYRKE: 100MG
     Route: 048
     Dates: start: 20181108
  9. DOMPERIDONE [Concomitant]
     Active Substance: DOMPERIDONE
     Indication: NAUSEA
     Dosage: STYRKE: 10 MG ; AS NECESSARY
     Route: 048
     Dates: start: 20190113
  10. ISOSORBIDE MONONITRATE. [Concomitant]
     Active Substance: ISOSORBIDE MONONITRATE
     Indication: ANGINA PECTORIS
     Dosage: STYRKE: 60MG
     Route: 048
     Dates: start: 20190122
  11. ACICLOVIR [Concomitant]
     Active Substance: ACYCLOVIR
     Indication: HERPES ZOSTER
     Route: 048
     Dates: start: 20170725, end: 20190113
  12. RAMIPRIL. [Concomitant]
     Active Substance: RAMIPRIL
     Indication: HYPERTENSION
     Dosage: STYRKE: 1,25MG, 2,5MG OG 5 MGDOSIS: VARIERENDE DOSER ()
     Route: 048
  13. LEVETIRACETAM. [Concomitant]
     Active Substance: LEVETIRACETAM
     Indication: EPILEPSY
     Dosage: STYRKE: 500MG
     Route: 048
     Dates: start: 20190114
  14. PREDNISOLONE. [Concomitant]
     Active Substance: PREDNISOLONE
     Indication: HORMONE THERAPY
     Dosage: STYRKE: 5MG
     Route: 048
     Dates: start: 20190114

REACTIONS (1)
  - Angina pectoris [Recovering/Resolving]

NARRATIVE: CASE EVENT DATE: 201811
